FAERS Safety Report 15356635 (Version 1)
Quarter: 2018Q3

REPORT INFORMATION
  Report Type: Spontaneous
  Country: US (occurrence: US)
  Receive Date: 20180906
  Receipt Date: 20180906
  Transmission Date: 20181010
  Serious: Yes (Other)
  Sender: FDA-Public Use
  Company Number: US-PFIZER INC-2018353823

PATIENT
  Age: 63 Year
  Sex: Female
  Weight: 53.69 kg

DRUGS (3)
  1. NIVOLUMAB [Suspect]
     Active Substance: NIVOLUMAB
     Dosage: 3 MG/KG, CYCLIC (3 MG/KG IV ON DAY 24 (? 2 DAYS))
     Route: 042
  2. IDARUBICIN HCL [Suspect]
     Active Substance: IDARUBICIN HYDROCHLORIDE
     Dosage: UNK UNK, CYCLIC (12 MG/M2 IV X 3 DAYS ON DAYS 1? 3)
     Route: 042
  3. CYTARABINE. [Suspect]
     Active Substance: CYTARABINE
     Dosage: UNK UNK, CYCLIC (1.5 G/M2 CIVI X 3 DAYS ON DAYS 1?3 (DOSE REDUCED FROM 2 G/M2 BECAUSE AGE } 60))
     Route: 042

REACTIONS (10)
  - Transaminases increased [Unknown]
  - Bone marrow failure [Unknown]
  - Febrile neutropenia [Unknown]
  - Cellulitis [Unknown]
  - Enterocolitis [Unknown]
  - Aspergillus infection [Unknown]
  - Neurofibromatosis [Not Recovered/Not Resolved]
  - Nausea [Not Recovered/Not Resolved]
  - Hypotension [Unknown]
  - Sepsis [Unknown]
